FAERS Safety Report 21891479 (Version 1)
Quarter: 2023Q1

REPORT INFORMATION
  Report Type: Report from Study
  Country: US (occurrence: US)
  Receive Date: 20230120
  Receipt Date: 20230120
  Transmission Date: 20230418
  Serious: No
  Sender: FDA-Public Use
  Company Number: US-ABBVIE-4270543

PATIENT
  Age: 9 Year
  Sex: Female

DRUGS (1)
  1. HUMIRA [Suspect]
     Active Substance: ADALIMUMAB
     Indication: Juvenile idiopathic arthritis
     Route: 058
     Dates: start: 20221021

REACTIONS (7)
  - SARS-CoV-2 test positive [Recovered/Resolved]
  - Injection site bruising [Recovered/Resolved]
  - Product administered at inappropriate site [Recovered/Resolved]
  - Influenza [Recovered/Resolved]
  - Nasal congestion [Unknown]
  - Vaccination site discolouration [Unknown]
  - Vaccination site injury [Unknown]

NARRATIVE: CASE EVENT DATE: 20221210
